FAERS Safety Report 23702485 (Version 1)
Quarter: 2024Q2

REPORT INFORMATION
  Report Type: Spontaneous
  Country: EG (occurrence: EG)
  Receive Date: 20240403
  Receipt Date: 20240403
  Transmission Date: 20240716
  Serious: Yes (Hospitalization)
  Sender: FDA-Public Use
  Company Number: EG-SA-SAC20240402000389

PATIENT
  Age: 42 Year
  Sex: Female

DRUGS (3)
  1. AMARYL [Suspect]
     Active Substance: GLIMEPIRIDE
     Indication: Diabetes mellitus
     Dosage: 2 MG, QD
     Route: 048
     Dates: start: 2021
  2. AMARYL [Suspect]
     Active Substance: GLIMEPIRIDE
     Dosage: 3 MG, QD
     Route: 048
     Dates: start: 2023
  3. ETHINYL ESTRADIOL\GESTODENE [Suspect]
     Active Substance: ETHINYL ESTRADIOL\GESTODENE
     Dosage: UNK UNK, QD
     Route: 048
     Dates: start: 2008

REACTIONS (3)
  - Uterine leiomyoma [Recovered/Resolved]
  - Dyspareunia [Recovered/Resolved]
  - Dysmenorrhoea [Recovered/Resolved]

NARRATIVE: CASE EVENT DATE: 20240215
